FAERS Safety Report 25854661 (Version 1)
Quarter: 2025Q3

REPORT INFORMATION
  Report Type: Spontaneous
  Country: EU (occurrence: EU)
  Receive Date: 20250927
  Receipt Date: 20250927
  Transmission Date: 20251021
  Serious: Yes (Other)
  Sender: SANOFI AVENTIS
  Company Number: EU-SA-2025SA286247

PATIENT
  Age: 62 Year
  Sex: Male

DRUGS (3)
  1. DUPIXENT [Suspect]
     Active Substance: DUPILUMAB
     Indication: Asthma
     Dosage: 300 MG, QOW
     Dates: start: 202303, end: 202305
  2. PREDNISOLONE [Concomitant]
     Active Substance: PREDNISOLONE
     Dosage: 37.5 MG, QD
     Dates: start: 200803, end: 201002
  3. PREDNISOLONE [Concomitant]
     Active Substance: PREDNISOLONE
     Dosage: 2.5 MG DAILY
     Dates: start: 2018, end: 2023

REACTIONS (12)
  - Eosinophilic granulomatosis with polyangiitis [Unknown]
  - Fatigue [Unknown]
  - Decreased appetite [Unknown]
  - Rhinorrhoea [Unknown]
  - Weight decreased [Unknown]
  - C-reactive protein increased [Unknown]
  - Eosinophil count decreased [Unknown]
  - Forced expiratory volume decreased [Unknown]
  - Forced vital capacity decreased [Unknown]
  - Lung infiltration [Unknown]
  - Pulmonary mass [Unknown]
  - Headache [Unknown]

NARRATIVE: CASE EVENT DATE: 20230101
